FAERS Safety Report 7021466-7 (Version None)
Quarter: 2010Q3

REPORT INFORMATION
  Report Type: 
  Country: None (occurrence: None)
  Receive Date: 20100929
  Receipt Date: 20100927
  Transmission Date: 20110219
  Serious: Yes (Life-Threatening, Hospitalization, Other)
  Sender: FDA-Public Use
  Company Number: US-ELI_LILLY_AND_COMPANY-US201002003767

PATIENT
  Sex: Male

DRUGS (7)
  1. BYETTA [Suspect]
     Dosage: UNK, UNKNOWN
     Route: 065
     Dates: start: 20061001, end: 20081001
  2. AMIODARONE [Concomitant]
     Dosage: 200 MG, DAILY (1/D)
  3. VITAMIN B-12 [Concomitant]
     Dosage: 1000 MG, DAILY (1/D)
  4. POTASSIUM [Concomitant]
     Dosage: 20 MEQ, DAILY (1/D)
  5. MAGNESIUM [Concomitant]
     Dosage: 400 MG, DAILY (1/D)
  6. ASCORBIC ACID [Concomitant]
  7. NORVASC [Concomitant]
     Dosage: 5 MG, DAILY (1/D)

REACTIONS (5)
  - MULTI-ORGAN FAILURE [None]
  - PANCREATITIS NECROTISING [None]
  - PNEUMONIA [None]
  - RENAL FAILURE CHRONIC [None]
  - SEPSIS [None]
